FAERS Safety Report 9265983 (Version 4)
Quarter: 2014Q2

REPORT INFORMATION
  Report Type: Spontaneous
  Country: US (occurrence: US)
  Receive Date: 20130501
  Receipt Date: 20140515
  Transmission Date: 20141212
  Serious: Yes (Hospitalization)
  Sender: FDA-Public Use
  Company Number: US-B.I. PHARMACEUTICALS,INC./RIDGEFIELD-2013-BI-11932BP

PATIENT
  Age: 59 Year
  Sex: Male
  Weight: 136.4 kg

DRUGS (8)
  1. PRADAXA [Suspect]
     Indication: ATRIAL FIBRILLATION
     Dosage: 300 MG
     Route: 065
     Dates: start: 20110727, end: 20110731
  2. PRADAXA [Suspect]
     Indication: ANTICOAGULANT THERAPY
  3. ATENOLOL [Concomitant]
     Indication: CORONARY ARTERY DISEASE
     Dosage: 35 MG
     Route: 065
     Dates: start: 2008
  4. SIMVASTATIN [Concomitant]
     Indication: DYSLIPIDAEMIA
     Dosage: 80 MG
     Route: 065
     Dates: start: 2008
  5. PLAVIX [Concomitant]
     Route: 065
     Dates: start: 2008
  6. ASPIRIN [Concomitant]
     Indication: CORONARY ARTERY DISEASE
     Dosage: 81 MG
     Route: 065
  7. LOVAZA [Concomitant]
     Dosage: 2 G
     Route: 065
  8. PROTONIX [Concomitant]
     Dosage: 40 MG
     Route: 065

REACTIONS (1)
  - Gastrointestinal haemorrhage [Recovered/Resolved]
